FAERS Safety Report 6442054-7 (Version None)
Quarter: 2009Q4

REPORT INFORMATION
  Report Type: 
  Country: None (occurrence: None)
  Receive Date: 20091116
  Receipt Date: 20091109
  Transmission Date: 20100525
  Serious: Yes (Hospitalization)
  Sender: FDA-Public Use
  Company Number: US-GENENTECH-265053

PATIENT
  Sex: Female
  Weight: 155 kg

DRUGS (24)
  1. XOLAIR [Suspect]
     Indication: ASTHMA
     Dosage: 300 MG, Q2W/X3
     Route: 058
     Dates: start: 20071107
  2. XOLAIR [Suspect]
     Indication: DRUG DEPENDENCE
  3. CHEMOTHERAPY (UNK INGREDIENTS) [Concomitant]
     Indication: LUNG NEOPLASM MALIGNANT
  4. ALBUTEROL [Concomitant]
     Indication: DRUG USE FOR UNKNOWN INDICATION
  5. ALBUTEROL [Concomitant]
     Indication: DRUG USE FOR UNKNOWN INDICATION
  6. ALBUTEROL [Concomitant]
     Indication: DRUG USE FOR UNKNOWN INDICATION
  7. ALLOPURINOL [Concomitant]
     Indication: DRUG USE FOR UNKNOWN INDICATION
  8. AMITRIPTYLINE HCL [Concomitant]
     Indication: DRUG USE FOR UNKNOWN INDICATION
  9. ASPIRIN [Concomitant]
     Indication: DRUG USE FOR UNKNOWN INDICATION
  10. BYETTA [Concomitant]
     Indication: DRUG USE FOR UNKNOWN INDICATION
  11. FORADIL [Concomitant]
     Indication: DRUG USE FOR UNKNOWN INDICATION
  12. HUMALOG [Concomitant]
     Indication: DRUG USE FOR UNKNOWN INDICATION
  13. IPRATROPIUM BROMIDE NEBULIZER [Concomitant]
     Indication: DRUG USE FOR UNKNOWN INDICATION
  14. INSULIN [Concomitant]
     Indication: DRUG USE FOR UNKNOWN INDICATION
  15. LIPITOR [Concomitant]
     Indication: DRUG USE FOR UNKNOWN INDICATION
  16. LORAZEPAM [Concomitant]
     Indication: DRUG USE FOR UNKNOWN INDICATION
  17. OMEPRAZOLE [Concomitant]
     Indication: DRUG USE FOR UNKNOWN INDICATION
  18. PAROXETINE HCL [Concomitant]
     Indication: DRUG USE FOR UNKNOWN INDICATION
  19. PREDNISONE [Concomitant]
     Indication: DRUG USE FOR UNKNOWN INDICATION
  20. PULMICORT [Concomitant]
     Indication: DRUG USE FOR UNKNOWN INDICATION
  21. SINGULAIR [Concomitant]
     Indication: DRUG USE FOR UNKNOWN INDICATION
  22. SPIRONOLACTONE [Concomitant]
     Indication: DRUG USE FOR UNKNOWN INDICATION
  23. STARLIX [Concomitant]
     Indication: DRUG USE FOR UNKNOWN INDICATION
  24. THEOPHYLLINE [Concomitant]
     Indication: DRUG USE FOR UNKNOWN INDICATION

REACTIONS (1)
  - DEHYDRATION [None]
